FAERS Safety Report 9279063 (Version 3)
Quarter: 2015Q1

REPORT INFORMATION
  Report Type: Spontaneous
  Country: US (occurrence: US)
  Receive Date: 20130508
  Receipt Date: 20150323
  Transmission Date: 20150721
  Serious: No
  Sender: FDA-Public Use
  Company Number: US-009507513-1305USA001690

PATIENT
  Sex: Male
  Weight: 65.76 kg

DRUGS (1)
  1. PROPECIA [Suspect]
     Active Substance: FINASTERIDE
     Indication: ALOPECIA
     Dosage: 1 MG, UNK
     Route: 048
     Dates: start: 20070811, end: 2011

REACTIONS (6)
  - Erectile dysfunction [Not Recovered/Not Resolved]
  - Sexual dysfunction [Unknown]
  - Sexual dysfunction [Not Recovered/Not Resolved]
  - Drug ineffective [Unknown]
  - Headache [Unknown]
  - Glaucoma [Unknown]

NARRATIVE: CASE EVENT DATE: 2010
